FAERS Safety Report 11945655 (Version 2)
Quarter: 2016Q1

REPORT INFORMATION
  Report Type: Report from Study
  Country: US (occurrence: US)
  Receive Date: 20160125
  Receipt Date: 20160129
  Transmission Date: 20160526
  Serious: Yes (Hospitalization)
  Sender: FDA-Public Use
  Company Number: US-ACTELION-A-NJ2013-89434

PATIENT
  Age: 67 Year
  Sex: Male

DRUGS (1)
  1. VELETRI [Suspect]
     Active Substance: EPOPROSTENOL
     Indication: PULMONARY ARTERIAL HYPERTENSION
     Dosage: 40 NG, PER MIN
     Route: 042
     Dates: start: 20130415

REACTIONS (5)
  - Palpitations [Unknown]
  - Device infusion issue [Unknown]
  - Catheter placement [Unknown]
  - Heart rate increased [Unknown]
  - Chest pain [Unknown]
